FAERS Safety Report 4655736-4 (Version None)
Quarter: 2005Q2

REPORT INFORMATION
  Report Type: 
  Country: None (occurrence: None)
  Receive Date: 20050507
  Receipt Date: 20050429
  Transmission Date: 20051028
  Serious: Yes (Death)
  Sender: FDA-Public Use
  Company Number: GB-MERCK-0505GBR00022

PATIENT
  Age: 69 Year
  Sex: Male

DRUGS (7)
  1. BLOCADREN [Suspect]
     Indication: MYOCARDIAL INFARCTION
     Route: 048
     Dates: start: 20030803
  2. BLOCADREN [Suspect]
     Indication: PROPHYLAXIS
     Route: 048
     Dates: start: 20030803
  3. STREPTOKINASE [Concomitant]
     Route: 065
     Dates: start: 20030802
  4. SIMVASTATIN [Concomitant]
     Route: 065
     Dates: start: 20030803
  5. ENALAPRIL MALEATE [Concomitant]
     Route: 065
     Dates: start: 20030803
  6. BUMETANIDE [Concomitant]
     Route: 065
     Dates: start: 20030803
  7. ASPIRIN [Concomitant]
     Route: 065
     Dates: start: 20030803

REACTIONS (3)
  - CONFUSIONAL STATE [None]
  - DISORIENTATION [None]
  - SUDDEN DEATH [None]
